FAERS Safety Report 4405627-9 (Version None)
Quarter: 2004Q3

REPORT INFORMATION
  Report Type: 
  Country: None (occurrence: None)
  Receive Date: 20040723
  Receipt Date: 20031022
  Transmission Date: 20050211
  Serious: No
  Sender: FDA-Public Use
  Company Number: US-GLAXOSMITHKLINE-A0431167A

PATIENT
  Age: 61 Year
  Sex: Female

DRUGS (6)
  1. AVANDIA [Suspect]
     Dosage: 8MG PER DAY
     Route: 048
  2. GLUCOTROL XL [Concomitant]
  3. AVAPRO [Concomitant]
  4. NEURONTIN [Concomitant]
  5. UNKNOWN DIURETIC [Concomitant]
  6. PAIN MEDICATION [Concomitant]

REACTIONS (1)
  - HYPERGLYCAEMIA [None]
